FAERS Safety Report 4416643-5 (Version None)
Quarter: 2004Q3

REPORT INFORMATION
  Report Type: 
  Country: None (occurrence: None)
  Receive Date: 20040802
  Receipt Date: 20040715
  Transmission Date: 20050211
  Serious: Yes (Hospitalization)
  Sender: FDA-Public Use
  Company Number: 199675

PATIENT
  Age: 44 Year
  Sex: Female

DRUGS (7)
  1. AVONEX [Suspect]
     Indication: MULTIPLE SCLEROSIS
     Dosage: 30 MCG QW IM
     Route: 030
     Dates: start: 19980406, end: 20030801
  2. AVONEX [Suspect]
     Indication: MULTIPLE SCLEROSIS
     Dosage: 30 MCG QW IM
     Route: 030
     Dates: start: 20030801
  3. SKELAXIN [Concomitant]
  4. NORTRIPTYLINE HCL [Concomitant]
  5. MECLIZINE [Concomitant]
  6. BACLOFEN [Concomitant]
  7. COPAXONE [Concomitant]

REACTIONS (3)
  - CONDITION AGGRAVATED [None]
  - HYSTERECTOMY [None]
  - MULTIPLE SCLEROSIS [None]
